FAERS Safety Report 7220799-9 (Version None)
Quarter: 2011Q1

REPORT INFORMATION
  Report Type: 
  Country: None (occurrence: None)
  Receive Date: 20110112
  Receipt Date: 20110103
  Transmission Date: 20110831
  Serious: Yes (Other)
  Sender: FDA-Public Use
  Company Number: US-BIOGENIDEC-2010BI045021

PATIENT
  Age: 29 Year
  Sex: Female

DRUGS (5)
  1. ZOLOFT [Concomitant]
  2. PROVIGIL [Concomitant]
  3. MULTIVITAMIN [Concomitant]
  4. CYMBALTA [Concomitant]
  5. TYSABRI [Suspect]
     Indication: MULTIPLE SCLEROSIS
     Route: 042
     Dates: start: 20101119

REACTIONS (2)
  - ABORTION SPONTANEOUS [None]
  - PREGNANCY [None]
